FAERS Safety Report 6840142-4 (Version None)
Quarter: 2010Q3

REPORT INFORMATION
  Report Type: 
  Country: None (occurrence: None)
  Receive Date: 20100709
  Receipt Date: 20100702
  Transmission Date: 20110219
  Serious: Yes (Other)
  Sender: FDA-Public Use
  Company Number: 20108830

PATIENT
  Age: 28 Year
  Sex: Male

DRUGS (1)
  1. LIORESAL [Suspect]
     Indication: MUSCLE SPASTICITY
     Dosage: 449.8 MCG, DAILY, INTRATHECAL
     Route: 037

REACTIONS (9)
  - DEVICE BREAKAGE [None]
  - DEVICE LEAKAGE [None]
  - FEELING OF RELAXATION [None]
  - HYPERTONIA [None]
  - HYPOTONIA [None]
  - IMPLANT SITE SWELLING [None]
  - MEDICAL DEVICE COMPLICATION [None]
  - MUSCLE SPASTICITY [None]
  - SOMNOLENCE [None]
